FAERS Safety Report 7286516-1 (Version None)
Quarter: 2011Q1

REPORT INFORMATION
  Report Type: 
  Country: None (occurrence: None)
  Receive Date: 20110210
  Receipt Date: 20110204
  Transmission Date: 20110831
  Serious: Yes (Life-Threatening, Hospitalization)
  Sender: FDA-Public Use
  Company Number: FR-PFIZER INC-2011026595

PATIENT
  Sex: Female

DRUGS (10)
  1. TRIFLUCAN [Suspect]
     Dosage: UNK
     Route: 042
     Dates: start: 20100327, end: 20100428
  2. LEVOTHYROX [Concomitant]
  3. CYTARABINE [Suspect]
     Indication: METASTASES TO MENINGES
     Dosage: UNK
     Route: 037
     Dates: start: 20100325, end: 20100422
  4. ELVORINE [Suspect]
     Indication: CHEMOTHERAPY CYTOKINE PROPHYLAXIS
     Dosage: UNK
     Route: 042
     Dates: start: 20100328, end: 20100328
  5. HEPARIN ^CHOAY^ [Suspect]
     Indication: THROMBOSIS PROPHYLAXIS
     Dosage: UNK
     Route: 042
     Dates: start: 20100302, end: 20100330
  6. PERFALGAN [Suspect]
     Dosage: UNK
     Route: 042
     Dates: start: 20100325, end: 20100422
  7. BISOPROLOL FUMARATE [Concomitant]
  8. DEPO-MEDROL [Suspect]
     Indication: METASTASES TO MENINGES
     Dosage: UNK
     Route: 037
     Dates: start: 20100325, end: 20100422
  9. METHOTREXATE ^ROGER BELLON^ [Suspect]
     Indication: METASTASES TO MENINGES
     Dosage: UNK
     Route: 037
     Dates: start: 20100325, end: 20100422
  10. PREVISCAN [Concomitant]

REACTIONS (1)
  - BONE MARROW FAILURE [None]
